FAERS Safety Report 13343819 (Version 3)
Quarter: 2017Q2

REPORT INFORMATION
  Report Type: Report from Study
  Country: None (occurrence: US)
  Receive Date: 20170316
  Receipt Date: 20170509
  Transmission Date: 20170830
  Serious: Yes (Other)
  Sender: FDA-Public Use
  Company Number: US-ABBVIE-17P-163-1904136-00

PATIENT
  Age: 24 Year
  Sex: Female

DRUGS (5)
  1. LUPRON DEPOT [Suspect]
     Active Substance: LEUPROLIDE ACETATE
     Indication: ENDOMETRIOSIS
     Dosage: HS
     Route: 050
     Dates: start: 2014, end: 2015
  2. LUPRON DEPOT [Suspect]
     Active Substance: LEUPROLIDE ACETATE
     Dosage: HS
     Route: 058
     Dates: start: 20140218
  3. TOPAMAX [Concomitant]
     Active Substance: TOPIRAMATE
     Indication: MIGRAINE
     Route: 048
  4. MAXALT [Concomitant]
     Active Substance: RIZATRIPTAN BENZOATE
     Indication: MIGRAINE
     Route: 048
  5. PAMELOR [Concomitant]
     Active Substance: NORTRIPTYLINE HYDROCHLORIDE
     Indication: MIGRAINE
     Route: 048

REACTIONS (7)
  - Endometriosis [Unknown]
  - Arthroscopy [Unknown]
  - Abdominal pain [Unknown]
  - Pelvic pain [Not Recovered/Not Resolved]
  - Joint dislocation [Recovered/Resolved]
  - Pelvic pain [Not Recovered/Not Resolved]
  - Menstrual disorder [Unknown]

NARRATIVE: CASE EVENT DATE: 201411
